FAERS Safety Report 16011105 (Version 1)
Quarter: 2019Q1

REPORT INFORMATION
  Report Type: Spontaneous
  Country: US (occurrence: US)
  Receive Date: 20190227
  Receipt Date: 20190227
  Transmission Date: 20190418
  Serious: No
  Sender: FDA-Public Use
  Company Number: US-TEVA-2019-US-1007551

PATIENT
  Age: 80 Year
  Sex: Female

DRUGS (2)
  1. BETAMETHASONE DIPROPIONATE. [Suspect]
     Active Substance: BETAMETHASONE DIPROPIONATE
     Indication: ORAL LICHEN PLANUS
     Route: 061
  2. CLOTRIMAZOLE. [Concomitant]
     Active Substance: CLOTRIMAZOLE
     Indication: ORAL LICHEN PLANUS
     Dosage: CLOTRIMAZOLE TROCHES, 10MG, 3 TIMES DAILY AS NEEDED
     Route: 065

REACTIONS (1)
  - Oral hairy leukoplakia [Recovered/Resolved]
